FAERS Safety Report 19301274 (Version 1)
Quarter: 2021Q2

REPORT INFORMATION
  Report Type: Spontaneous
  Country: IR (occurrence: IR)
  Receive Date: 20210525
  Receipt Date: 20210525
  Transmission Date: 20210717
  Serious: Yes (Other)
  Sender: FDA-Public Use
  Company Number: IR-LUPIN PHARMACEUTICALS INC.-2021-07754

PATIENT
  Age: 22 Year
  Sex: Female

DRUGS (1)
  1. LEVOTHYROXINE. [Suspect]
     Active Substance: LEVOTHYROXINE
     Indication: HYPOTHYROIDISM
     Dosage: 50 MICROGRAM, QD
     Route: 065

REACTIONS (6)
  - Polyhydramnios [Unknown]
  - Premature rupture of membranes [Unknown]
  - Twin reversed arterial perfusion sequence malformation [Unknown]
  - Foetal death [None]
  - Maternal exposure during pregnancy [Unknown]
  - Gestational diabetes [Unknown]
